FAERS Safety Report 19737687 (Version 1)
Quarter: 2021Q3

REPORT INFORMATION
  Report Type: Spontaneous
  Country: FR (occurrence: FR)
  Receive Date: 20210823
  Receipt Date: 20210823
  Transmission Date: 20211014
  Serious: Yes (Hospitalization)
  Sender: FDA-Public Use
  Company Number: FR-UCBSA-2021040012

PATIENT
  Age: 4 Year
  Sex: Female

DRUGS (5)
  1. ETHOSUXIMIDE. [Suspect]
     Active Substance: ETHOSUXIMIDE
     Indication: MYOCLONIC EPILEPSY
  2. CLOBAZAM. [Suspect]
     Active Substance: CLOBAZAM
     Indication: MYOCLONIC EPILEPSY
  3. LAMOTRIGINE. [Suspect]
     Active Substance: LAMOTRIGINE
     Indication: MYOCLONIC EPILEPSY
  4. LEVETIRACETAM. [Suspect]
     Active Substance: LEVETIRACETAM
     Indication: MYOCLONIC EPILEPSY
  5. VALPROIC ACID. [Suspect]
     Active Substance: VALPROIC ACID
     Indication: MYOCLONIC EPILEPSY

REACTIONS (6)
  - Drug ineffective [Unknown]
  - Myoclonic epilepsy [Unknown]
  - Petit mal epilepsy [Unknown]
  - Drop attacks [Unknown]
  - Psychomotor skills impaired [Unknown]
  - Status epilepticus [Unknown]
